FAERS Safety Report 5159511-6 (Version None)
Quarter: 2006Q4

REPORT INFORMATION
  Report Type: 
  Country: None (occurrence: None)
  Receive Date: 20061117
  Receipt Date: 20060622
  Transmission Date: 20070319
  Serious: Yes (Death, Hospitalization, Other)
  Sender: FDA-Public Use
  Company Number: 2006080495

PATIENT
  Age: 88 Year
  Sex: Female
  Weight: 97.5234 kg

DRUGS (1)
  1. CELEBREX [Suspect]
     Indication: PAIN
     Dosage: ONE OR TWO (200 MG)
     Dates: start: 20030120, end: 20040613

REACTIONS (1)
  - CEREBROVASCULAR ACCIDENT [None]
